FAERS Safety Report 20076905 (Version 1)
Quarter: 2021Q4

REPORT INFORMATION
  Report Type: Spontaneous
  Country: FR (occurrence: FR)
  Receive Date: 20211116
  Receipt Date: 20211116
  Transmission Date: 20220303
  Serious: Yes (Other)
  Sender: FDA-Public Use
  Company Number: None

PATIENT
  Age: 89 Year
  Sex: Male

DRUGS (6)
  1. OXYCONTIN [Suspect]
     Active Substance: OXYCODONE HYDROCHLORIDE
     Indication: Arthralgia
     Dosage: 10 MG, DAILY (5 MG X 2 /J; STRENGTH 5MG)
     Route: 048
     Dates: start: 20210902
  2. OXYCONTIN [Suspect]
     Active Substance: OXYCODONE HYDROCHLORIDE
     Indication: Back pain
  3. MORPHINE SULFATE [Suspect]
     Active Substance: MORPHINE SULFATE
     Indication: Arthralgia
     Dosage: 5 MG, UNK (INTERDOSE)
     Route: 048
     Dates: start: 20210827, end: 20210828
  4. MORPHINE SULFATE [Suspect]
     Active Substance: MORPHINE SULFATE
     Indication: Back pain
  5. SKENAN [Suspect]
     Active Substance: MORPHINE SULFATE
     Indication: Arthralgia
     Dosage: 20 MG, DAILY (1 CP X 2 /J)
     Route: 048
     Dates: start: 20210827, end: 20210902
  6. SKENAN [Suspect]
     Active Substance: MORPHINE SULFATE
     Indication: Back pain

REACTIONS (4)
  - Acute respiratory distress syndrome [Unknown]
  - Drug intolerance [Unknown]
  - Confusional state [Unknown]
  - Hallucination [Unknown]

NARRATIVE: CASE EVENT DATE: 20210901
